FAERS Safety Report 6965019-5 (Version None)
Quarter: 2010Q3

REPORT INFORMATION
  Report Type: 
  Country: None (occurrence: None)
  Receive Date: 20100901
  Receipt Date: 20100824
  Transmission Date: 20110219
  Serious: Yes (Death, Hospitalization)
  Sender: FDA-Public Use
  Company Number: 2010US002748

PATIENT
  Age: 60 Year
  Sex: Female

DRUGS (2)
  1. PROGRAF [Suspect]
     Indication: LIVER TRANSPLANT
     Dosage: 0.5 MG, BID, ORAL
     Route: 048
  2. ANTIVIRALS NOS (ANTIVIRALS NOS) [Suspect]
     Indication: VIRAL INFECTION

REACTIONS (5)
  - DIALYSIS [None]
  - HEPATIC FAILURE [None]
  - NASOPHARYNGITIS [None]
  - RENAL FAILURE [None]
  - VIRAL INFECTION [None]
